FAERS Safety Report 7709218-3 (Version None)
Quarter: 2011Q3

REPORT INFORMATION
  Report Type: 
  Country: None (occurrence: None)
  Receive Date: 20110825
  Receipt Date: 20110815
  Transmission Date: 20111222
  Serious: Yes (Other)
  Sender: FDA-Public Use
  Company Number: US-JNJFOC-20110808828

PATIENT
  Age: 41 Year
  Sex: Male

DRUGS (30)
  1. VINCRISTINE [Suspect]
     Route: 065
  2. RITUXIMAB [Suspect]
     Route: 065
  3. RITUXIMAB [Suspect]
     Route: 065
  4. VINCRISTINE [Suspect]
     Indication: ANGIOIMMUNOBLASTIC T-CELL LYMPHOMA
     Route: 065
  5. PREDNISONE [Suspect]
     Route: 065
  6. PREDNISONE [Suspect]
     Route: 065
  7. DOXORUBICIN HYDROCHLORIDE [Suspect]
     Route: 042
  8. PREDNISONE [Suspect]
     Route: 065
  9. RITUXIMAB [Suspect]
     Route: 065
  10. VINCRISTINE [Suspect]
     Route: 065
  11. CYCLOPHOSPHAMIDE [Suspect]
     Route: 065
  12. CYCLOPHOSPHAMIDE [Suspect]
     Route: 065
  13. DOXORUBICIN HYDROCHLORIDE [Suspect]
     Route: 042
  14. RITUXIMAB [Suspect]
     Indication: ANGIOIMMUNOBLASTIC T-CELL LYMPHOMA
     Route: 065
  15. RITUXIMAB [Suspect]
     Route: 065
  16. PREDNISONE [Suspect]
     Indication: ANGIOIMMUNOBLASTIC T-CELL LYMPHOMA
     Route: 065
  17. PREDNISONE [Suspect]
     Route: 065
  18. CYCLOPHOSPHAMIDE [Suspect]
     Route: 065
  19. DOXORUBICIN HYDROCHLORIDE [Suspect]
     Indication: ANGIOIMMUNOBLASTIC T-CELL LYMPHOMA
     Route: 042
  20. DOXORUBICIN HYDROCHLORIDE [Suspect]
     Route: 042
  21. RITUXIMAB [Suspect]
     Route: 065
  22. VINCRISTINE [Suspect]
     Route: 065
  23. DOXORUBICIN HYDROCHLORIDE [Suspect]
     Route: 042
  24. DOXORUBICIN HYDROCHLORIDE [Suspect]
     Route: 042
  25. PREDNISONE [Suspect]
     Route: 065
  26. CYCLOPHOSPHAMIDE [Suspect]
     Indication: ANGIOIMMUNOBLASTIC T-CELL LYMPHOMA
     Route: 065
  27. CYCLOPHOSPHAMIDE [Suspect]
     Route: 065
  28. VINCRISTINE [Suspect]
     Route: 065
  29. VINCRISTINE [Suspect]
     Route: 065
  30. CYCLOPHOSPHAMIDE [Suspect]
     Route: 065

REACTIONS (1)
  - NEUROPATHY PERIPHERAL [None]
